FAERS Safety Report 20331975 (Version 4)
Quarter: 2025Q2

REPORT INFORMATION
  Report Type: Spontaneous
  Country: None (occurrence: CA)
  Receive Date: 20220113
  Receipt Date: 20250414
  Transmission Date: 20250716
  Serious: Yes (Death, Hospitalization, Other)
  Sender: MYLAN
  Company Number: CA-PFIZER INC-202200025413

PATIENT
  Sex: Male
  Weight: 126.17 kg

DRUGS (4)
  1. REVATIO [Suspect]
     Active Substance: SILDENAFIL CITRATE
     Indication: Pulmonary arterial hypertension
     Dosage: 20 MG, TID (IN A 3 DAY)
     Dates: start: 20211220, end: 20240426
  2. FUROSEMIDE [Concomitant]
     Active Substance: FUROSEMIDE
     Indication: Product used for unknown indication
  3. FUROSEMIDE [Concomitant]
     Active Substance: FUROSEMIDE
     Dosage: 100 MILLIGRAM, BID (2X/DAY)
  4. RAMIPRIL [Concomitant]
     Active Substance: RAMIPRIL
     Indication: Product used for unknown indication

REACTIONS (4)
  - Death [Fatal]
  - Fluid retention [Fatal]
  - Blood iron decreased [Fatal]
  - Weight increased [Fatal]

NARRATIVE: CASE EVENT DATE: 20220101
